FAERS Safety Report 11008727 (Version 1)
Quarter: 2015Q2

REPORT INFORMATION
  Report Type: Spontaneous
  Country: None (occurrence: None)
  Receive Date: 20150409
  Receipt Date: 20150409
  Transmission Date: 20150821
  Serious: No
  Sender: FDA-Public Use
  Company Number: None

PATIENT
  Age: 41 Year
  Sex: Male
  Weight: 101 kg

DRUGS (3)
  1. TYLENOL [Concomitant]
     Active Substance: ACETAMINOPHEN
  2. BENADRYL [Concomitant]
     Active Substance: DIPHENHYDRAMINE HYDROCHLORIDE
  3. MORPHINE [Suspect]
     Active Substance: MORPHINE
     Indication: CHEST PAIN
     Dosage: PUSH Q4H INTRAVENOUS
     Route: 042
     Dates: start: 20150314, end: 20150317

REACTIONS (4)
  - Pneumonia [None]
  - Respiratory depression [None]
  - Renal impairment [None]
  - Somnolence [None]

NARRATIVE: CASE EVENT DATE: 20150317
